FAERS Safety Report 5869668-7 (Version None)
Quarter: 2008Q3

REPORT INFORMATION
  Report Type: 
  Country: None (occurrence: None)
  Receive Date: 20080904
  Receipt Date: 20080821
  Transmission Date: 20090109
  Serious: Yes (Hospitalization, Other)
  Sender: FDA-Public Use
  Company Number: US-ELI_LILLY_AND_COMPANY-US200808004490

PATIENT
  Sex: Female

DRUGS (6)
  1. EVISTA [Suspect]
     Indication: PROPHYLAXIS
     Dosage: 60 MG, UNK
     Dates: end: 20080520
  2. PROTONIX [Concomitant]
  3. PLAVIX [Concomitant]
  4. ALLEGRA [Concomitant]
  5. SPIRONOLACTONE [Concomitant]
  6. LISINOPRIL [Concomitant]

REACTIONS (3)
  - CARDIOVASCULAR DISORDER [None]
  - IMPLANTABLE DEFIBRILLATOR INSERTION [None]
  - MYOCARDIAL INFARCTION [None]
